FAERS Safety Report 5484828-5 (Version None)
Quarter: 2007Q4

REPORT INFORMATION
  Report Type: 
  Country: None (occurrence: None)
  Receive Date: 20071010
  Receipt Date: 20070925
  Transmission Date: 20080405
  Serious: Yes (Life-Threatening, Hospitalization)
  Sender: FDA-Public Use
  Company Number: S07-FRA-05333-01

PATIENT
  Age: 19 Year
  Sex: Female

DRUGS (5)
  1. CITALOPRAM HYDROBROMIDE [Suspect]
     Dates: start: 20070316, end: 20070316
  2. CLONAZEPAM [Suspect]
     Dates: start: 20070316, end: 20070316
  3. LEXOMIL                  (BROMAZEPAM) [Suspect]
     Dates: start: 20070316, end: 20070316
  4. IMOVANE           (ZOPICLONE) [Suspect]
     Dates: start: 20070316, end: 20070316
  5. THERALENE             (ALIMEMAZINE TARTRATE) [Suspect]
     Dates: start: 20070316, end: 20070316

REACTIONS (4)
  - GLASGOW COMA SCALE ABNORMAL [None]
  - HYPOTONIA [None]
  - SOMNOLENCE [None]
  - SUICIDE ATTEMPT [None]
